FAERS Safety Report 6404022-0 (Version None)
Quarter: 2009Q4

REPORT INFORMATION
  Report Type: 
  Country: None (occurrence: None)
  Receive Date: 20091016
  Receipt Date: 20090813
  Transmission Date: 20100525
  Serious: No
  Sender: FDA-Public Use
  Company Number: US-ALEXION-A200900657

PATIENT
  Sex: Female

DRUGS (10)
  1. SOLIRIS [Suspect]
     Indication: PAROXYSMAL NOCTURNAL HAEMOGLOBINURIA
     Dosage: 600 MG, QW
     Route: 042
     Dates: start: 20090313
  2. SOLIRIS [Suspect]
     Dosage: 900 MG, Q2W
     Route: 042
     Dates: start: 20090415
  3. SIMVASTATIN [Concomitant]
     Dosage: 40 MG, QD
     Route: 048
  4. PREVACID [Concomitant]
     Dosage: 30 MG, QD
     Route: 048
  5. COUMADIN [Concomitant]
     Dosage: 6 MG, 6 DAYS A WEEK
     Route: 048
  6. COUMADIN [Concomitant]
     Dosage: 5 MG, 1 DAY A WEEK
     Route: 048
  7. KEPRA [Concomitant]
     Dosage: 500 MG, BID
     Route: 048
  8. PREDNISONE [Concomitant]
     Indication: PAROXYSMAL NOCTURNAL HAEMOGLOBINURIA
     Dosage: 30 MG, QD
     Route: 048
  9. CARVEDILOL [Concomitant]
     Indication: CARDIAC DISORDER
     Dosage: 6.25 MG, BID
     Route: 048
  10. IRON [Concomitant]
     Dosage: UNK
     Route: 048

REACTIONS (1)
  - BLOOD LACTATE DEHYDROGENASE INCREASED [None]
